FAERS Safety Report 6100453-7 (Version None)
Quarter: 2009Q1

REPORT INFORMATION
  Report Type: 
  Country: None (occurrence: None)
  Receive Date: 20090227
  Receipt Date: 20090227
  Transmission Date: 20090719
  Serious: Yes (Other)
  Sender: FDA-Public Use
  Company Number: None

PATIENT
  Age: 33 Year
  Sex: Female
  Weight: 82.1011 kg

DRUGS (2)
  1. OCELLA BARR LABORATORIES [Suspect]
     Indication: CONTRACEPTION
     Dosage: 1 DAILY PO
     Route: 048
     Dates: start: 20081220, end: 20090225
  2. OCELLA BARR LABORATORIES [Suspect]
     Indication: MENOPAUSAL SYMPTOMS
     Dosage: 1 DAILY PO
     Route: 048
     Dates: start: 20081220, end: 20090225

REACTIONS (4)
  - HEADACHE [None]
  - MOOD SWINGS [None]
  - THERAPEUTIC RESPONSE UNEXPECTED WITH DRUG SUBSTITUTION [None]
  - WEIGHT INCREASED [None]
